FAERS Safety Report 17911223 (Version 2)
Quarter: 2020Q2

REPORT INFORMATION
  Report Type: Report from Study
  Country: GB (occurrence: GB)
  Receive Date: 20200618
  Receipt Date: 20200624
  Transmission Date: 20200714
  Serious: Yes (Hospitalization)
  Sender: FDA-Public Use
  Company Number: GB-ROCHE-2609659

PATIENT
  Age: 78 Year
  Sex: Female
  Weight: 48.9 kg

DRUGS (18)
  1. ATEZOLIZUMAB. [Suspect]
     Active Substance: ATEZOLIZUMAB
     Indication: DIFFUSE LARGE B-CELL LYMPHOMA
     Dosage: CYCLE 2, DAY 1, FOR UP TO 16 CYCLES (CYCLE = 21 DAYS).?ON 13/MAY/2020, SHE RECEIVED MOST RECENT DOSE
     Route: 042
     Dates: start: 20200311
  2. OBINUTUZUMAB. [Suspect]
     Active Substance: OBINUTUZUMAB
     Indication: DIFFUSE LARGE B-CELL LYMPHOMA
     Dosage: AT A FIXED DOSE 7 DAYS BEFORE THE FIRST DOSE OF RO7082859?(TOTAL VOLUME 250 ML) (START TIME: 12:08 P
     Route: 042
     Dates: start: 20200212, end: 20200212
  3. CHLORPHENAMINE [Concomitant]
     Active Substance: CHLORPHENIRAMINE MALEATE
     Route: 042
     Dates: start: 20200616, end: 20200616
  4. DALTEPARIN [Concomitant]
     Active Substance: DALTEPARIN
     Route: 065
     Dates: start: 20200522, end: 20200523
  5. LAXIDO [Concomitant]
     Active Substance: POLYETHYLENE GLYCOL 3350\POTASSIUM CHLORIDE\SODIUM BICARBONATE\SODIUM CHLORIDE
     Route: 065
     Dates: start: 20200526, end: 20200530
  6. PARACETAMOL [Concomitant]
     Active Substance: ACETAMINOPHEN
     Route: 048
     Dates: start: 20200513, end: 20200513
  7. CHLORPHENAMINE [Concomitant]
     Active Substance: CHLORPHENIRAMINE MALEATE
     Route: 042
     Dates: start: 20200422, end: 20200422
  8. RO7082859 (CD20/C3 T-CELL BISPECIFIC MAB) [Suspect]
     Active Substance: GLOFITAMAB
     Indication: DIFFUSE LARGE B-CELL LYMPHOMA
     Dosage: FOR UP TO 17 CYCLES (CYCLE = 21 DAYS)?ON 13/MAY/2020, SHE RECEIVED MOST RECENT DOSE OF RO7082859 (CD
     Route: 042
     Dates: start: 20200219, end: 20200219
  9. PARACETAMOL [Concomitant]
     Active Substance: ACETAMINOPHEN
     Route: 048
     Dates: start: 20200616, end: 20200616
  10. METHYLPREDNISOLONE. [Concomitant]
     Active Substance: METHYLPREDNISOLONE
     Route: 042
     Dates: start: 20200513, end: 20200513
  11. PARACETAMOL [Concomitant]
     Active Substance: ACETAMINOPHEN
     Route: 048
     Dates: start: 20200422, end: 20200422
  12. CHLORPHENAMINE [Concomitant]
     Active Substance: CHLORPHENIRAMINE MALEATE
     Route: 042
     Dates: start: 20200513, end: 20200513
  13. FERROUS SULPHATE [FERROUS SULFATE] [Concomitant]
     Active Substance: FERROUS SULFATE
     Indication: IRON DEFICIENCY ANAEMIA
     Route: 065
     Dates: start: 20200422
  14. MONOPOST [Concomitant]
     Active Substance: LATANOPROST
     Indication: GLAUCOMA
     Route: 065
     Dates: start: 2018
  15. METHYLPREDNISOLONE. [Concomitant]
     Active Substance: METHYLPREDNISOLONE
     Route: 042
     Dates: start: 20200422, end: 20200422
  16. METHYLPREDNISOLONE. [Concomitant]
     Active Substance: METHYLPREDNISOLONE
     Route: 042
     Dates: start: 20200616, end: 20200616
  17. COD LIVER OIL [Concomitant]
     Active Substance: COD LIVER OIL
     Route: 065
     Dates: start: 2015
  18. TURMERIC [CURCUMA LONGA] [Concomitant]
     Active Substance: HERBALS\TURMERIC
     Route: 065
     Dates: start: 2018

REACTIONS (1)
  - Herpes zoster [Not Recovered/Not Resolved]

NARRATIVE: CASE EVENT DATE: 20200518
